FAERS Safety Report 14668744 (Version 1)
Quarter: 2018Q1

REPORT INFORMATION
  Report Type: Spontaneous
  Country: NL (occurrence: NL)
  Receive Date: 20180322
  Receipt Date: 20180322
  Transmission Date: 20180509
  Serious: Yes (Other)
  Sender: FDA-Public Use
  Company Number: NL-TEVA-2018-NL-871409

PATIENT
  Age: 78 Year
  Sex: Female
  Weight: 74 kg

DRUGS (10)
  1. CURESS [Concomitant]
     Dosage: THERAPY START DATE AND END DATE ASKED BUT UNKNOWN
  2. THYRAX [Concomitant]
     Active Substance: LEVOTHYROXINE
     Dosage: THERAPY START DATE AND END DATE ASKED BUT UNKNOWN
  3. LUMIGAN OOGDRUPPELS [Concomitant]
     Dosage: THERAPY START DATE AND END DATE ASKED BUT UNKNOWN
  4. DOMPERIDON [Concomitant]
     Active Substance: DOMPERIDONE
     Dosage: THERAPY START DATE AND END DATE ASKED BUT UNKNOWN
  5. MESTINON [Concomitant]
     Active Substance: PYRIDOSTIGMINE BROMIDE
     Dosage: THERAPY START DATE AND END DATE ASKED BUT UNKNOWN
  6. TRUSOPT OOGDRUPPELS [Concomitant]
     Dosage: THERAPY START DATE AND END DATE ASKED BUT UNKNOWN
  7. NEXIUM [Concomitant]
     Active Substance: ESOMEPRAZOLE MAGNESIUM
     Dosage: THERAPY START DATE AND END DATE ASKED BUT UNKNOWN
  8. CLOPIDOGREL [Suspect]
     Active Substance: CLOPIDOGREL BISULFATE
     Indication: ANTICOAGULANT THERAPY
     Dosage: 1X DAILY 1 TABLET 75 MG.
     Route: 065
     Dates: start: 20180112, end: 20180117
  9. ALVESCO [Concomitant]
     Active Substance: CICLESONIDE
     Dosage: THERAPY START DATE AND END DATE ASKED BUT UNKNOWN
  10. OLMETEC [Concomitant]
     Active Substance: OLMESARTAN MEDOXOMIL
     Dosage: THERAPY START DATE AND END DATE ASKED BUT UNKNOWN

REACTIONS (5)
  - Fatigue [Recovering/Resolving]
  - Hypertension [Recovering/Resolving]
  - Hemiplegia [Recovering/Resolving]
  - Vision blurred [Recovering/Resolving]
  - Paraesthesia [Recovering/Resolving]

NARRATIVE: CASE EVENT DATE: 20180114
